FAERS Safety Report 8868783 (Version 1)
Quarter: 2012Q4

REPORT INFORMATION
  Report Type: 
  Country: US (occurrence: US)
  Receive Date: 20121024
  Receipt Date: 20121024
  Transmission Date: 20130627
  Serious: Yes (Other)
  Sender: FDA-Public Use
  Company Number: US-INCYTE CORPORATION-2012IN002115

PATIENT
  Sex: Female
  Weight: 54.42 kg

DRUGS (1)
  1. JAKAFI [Suspect]
     Dosage: 15 mg, bid
     Route: 048
     Dates: start: 20120713

REACTIONS (2)
  - Hip fracture [Unknown]
  - Fall [Unknown]
